FAERS Safety Report 9501130 (Version 1)
Quarter: 2013Q3

REPORT INFORMATION
  Report Type: Spontaneous
  Country: US (occurrence: US)
  Receive Date: 20130905
  Receipt Date: 20130905
  Transmission Date: 20140515
  Serious: Yes (Death)
  Sender: FDA-Public Use
  Company Number: US-FRI-1000048153

PATIENT
  Age: 23 Year
  Sex: Male

DRUGS (2)
  1. VIIBRYD [Suspect]
     Indication: DEPRESSION
     Dosage: 10 MG
     Dates: start: 20130513, end: 20130707
  2. VIIBRYD [Suspect]
     Dosage: 20 MG
     Route: 048
     Dates: start: 20130708

REACTIONS (1)
  - Completed suicide [Fatal]
